FAERS Safety Report 6091615-6 (Version None)
Quarter: 2009Q1

REPORT INFORMATION
  Report Type: 
  Country: None (occurrence: None)
  Receive Date: 20090225
  Receipt Date: 20080226
  Transmission Date: 20090719
  Serious: No
  Sender: FDA-Public Use
  Company Number: A0711947A

PATIENT
  Age: 42 Year
  Sex: Female

DRUGS (4)
  1. VALTREX [Suspect]
     Indication: GENITAL HERPES
     Dosage: 1TAB TWICE PER DAY
     Route: 048
     Dates: start: 20080211
  2. AZOR [Concomitant]
  3. CYMBALTA [Concomitant]
  4. CRESTOR [Concomitant]

REACTIONS (1)
  - DYSURIA [None]
